FAERS Safety Report 8218706-5 (Version None)
Quarter: 2012Q1

REPORT INFORMATION
  Report Type: 
  Country: None (occurrence: None)
  Receive Date: 20120319
  Receipt Date: 20120312
  Transmission Date: 20120608
  Serious: Yes (Hospitalization)
  Sender: FDA-Public Use
  Company Number: PHHY2012CA023126

PATIENT
  Sex: Male

DRUGS (1)
  1. AFINITOR [Suspect]
     Indication: PANCREATIC NEUROENDOCRINE TUMOUR METASTATIC
     Dosage: 10 MG DAILY
     Route: 048
     Dates: start: 20080201, end: 20120307

REACTIONS (5)
  - ABDOMINAL PAIN UPPER [None]
  - MALAISE [None]
  - VOMITING [None]
  - LUNG DISORDER [None]
  - BACK PAIN [None]
